FAERS Safety Report 18921880 (Version 1)
Quarter: 2021Q1

REPORT INFORMATION
  Report Type: Spontaneous
  Country: US (occurrence: US)
  Receive Date: 20210219
  Receipt Date: 20210219
  Transmission Date: 20210420
  Serious: Yes (Death)
  Sender: FDA-Public Use
  Company Number: None

PATIENT
  Age: 65 Year
  Sex: Female
  Weight: 49.9 kg

DRUGS (5)
  1. ONDANSETRON HCL [Concomitant]
     Active Substance: ONDANSETRON HYDROCHLORIDE
  2. BRAFTOVI [Suspect]
     Active Substance: ENCORAFENIB
     Indication: MALIGNANT MELANOMA
     Route: 048
     Dates: start: 20210127, end: 20210216
  3. MEKTOVI [Suspect]
     Active Substance: BINIMETINIB
     Indication: MALIGNANT MELANOMA
     Route: 048
     Dates: start: 20210127, end: 20210216
  4. DEXAMETHASONE. [Concomitant]
     Active Substance: DEXAMETHASONE
  5. POTASSIUM CITRATE ER [Concomitant]
     Active Substance: POTASSIUM CITRATE

REACTIONS (1)
  - Death [None]

NARRATIVE: CASE EVENT DATE: 20210217
